FAERS Safety Report 7764173-5 (Version None)
Quarter: 2011Q3

REPORT INFORMATION
  Report Type: 
  Country: None (occurrence: None)
  Receive Date: 20110921
  Receipt Date: 20110914
  Transmission Date: 20111222
  Serious: Yes (Hospitalization, Other)
  Sender: FDA-Public Use
  Company Number: US-ABBOTT-11P-163-0855194-00

PATIENT
  Sex: Female
  Weight: 86.26 kg

DRUGS (7)
  1. UNKNOWN ANTI-DEPRESSANT [Interacting]
     Indication: DEPRESSION
     Dates: end: 20110815
  2. SEROQUEL [Interacting]
     Indication: PRODUCT USED FOR UNKNOWN INDICATION
     Dates: end: 20110815
  3. HUMIRA [Suspect]
     Indication: PSORIASIS
     Route: 058
     Dates: start: 20101101, end: 20110401
  4. HUMIRA [Interacting]
     Route: 058
     Dates: start: 20110905
  5. AMBIEN [Interacting]
     Indication: PRODUCT USED FOR UNKNOWN INDICATION
  6. LEVOTHYROXINE SODIUM [Concomitant]
     Indication: HYPOTHYROIDISM
  7. SIMVASTATIN [Concomitant]
     Indication: BLOOD CHOLESTEROL INCREASED

REACTIONS (7)
  - COMA [None]
  - DRUG INTERACTION [None]
  - INFLUENZA [None]
  - CONCUSSION [None]
  - PAIN [None]
  - LOSS OF CONSCIOUSNESS [None]
  - BLOOD GLUCOSE DECREASED [None]
